FAERS Safety Report 7528840-0 (Version None)
Quarter: 2011Q2

REPORT INFORMATION
  Report Type: 
  Country: None (occurrence: None)
  Receive Date: 20110607
  Receipt Date: 20100601
  Transmission Date: 20111010
  Serious: No
  Sender: FDA-Public Use
  Company Number: US-ASTRAZENECA-2010SE26057

PATIENT
  Sex: Female

DRUGS (4)
  1. PRILOSEC OTC [Suspect]
     Route: 048
     Dates: start: 20100513, end: 20100528
  2. ESTROGENIC SUBSTANCE [Concomitant]
     Dosage: UNKNOWN
  3. MUSCLE JOINT ISSUE MEDS [Concomitant]
     Dosage: UNKNOWN
  4. DIGESTION MEDS [Concomitant]
     Dosage: UNKNOWN

REACTIONS (7)
  - SENSITIVITY OF TEETH [None]
  - ORAL PAIN [None]
  - NECK PAIN [None]
  - TOOTHACHE [None]
  - HEADACHE [None]
  - INCORRECT DRUG ADMINISTRATION DURATION [None]
  - DYSGEUSIA [None]
